FAERS Safety Report 4284833-0 (Version None)
Quarter: 2004Q1

REPORT INFORMATION
  Report Type: 
  Country: None (occurrence: None)
  Receive Date: 20040202
  Receipt Date: 20030501
  Transmission Date: 20041129
  Serious: Yes (Death)
  Sender: FDA-Public Use
  Company Number: 2004-01-1055

PATIENT
  Age: 43 Year
  Sex: Female

DRUGS (1)
  1. INTRON A [Suspect]
     Indication: MALIGNANT MELANOMA
     Dosage: 30.8-15.4 MU
     Dates: start: 19971103, end: 19980205

REACTIONS (3)
  - BONE MARROW TOXICITY [None]
  - HEPATOTOXICITY [None]
  - INFLUENZA LIKE ILLNESS [None]
